FAERS Safety Report 4539062-X (Version None)
Quarter: 2004Q4

REPORT INFORMATION
  Report Type: 
  Country: None (occurrence: None)
  Receive Date: 20041222
  Receipt Date: 20041214
  Transmission Date: 20050328
  Serious: Yes (Other)
  Sender: FDA-Public Use
  Company Number: SUSI-2004-00500

PATIENT
  Age: 14 Year
  Sex: Female

DRUGS (2)
  1. ADDERALL XR 15 [Suspect]
     Dosage: SEE IMAGE
     Dates: start: 20040818, end: 20040801
  2. ADDERALL XR 15 [Suspect]
     Dosage: SEE IMAGE
     Dates: start: 20041210, end: 20041210

REACTIONS (3)
  - ASTHMA [None]
  - COUGH [None]
  - THROAT IRRITATION [None]
